FAERS Safety Report 8008951-6 (Version None)
Quarter: 2011Q4

REPORT INFORMATION
  Report Type: 
  Country: None (occurrence: None)
  Receive Date: 20111227
  Receipt Date: 20111221
  Transmission Date: 20120403
  Serious: Yes (Hospitalization)
  Sender: FDA-Public Use
  Company Number: DE-ROCHE-792010

PATIENT
  Sex: Female
  Weight: 74 kg

DRUGS (14)
  1. HERCEPTIN [Suspect]
     Indication: BREAST CANCER
     Dosage: ON DAY 1 OF CYCLE 1 ONLY. LOADING DOSE.
     Route: 042
  2. RAMIPRIL [Concomitant]
     Dates: start: 20110724, end: 20111101
  3. INDAPAMIDE AND PERINDOPRIL ERBUMINE [Suspect]
     Indication: PRODUCT USED FOR UNKNOWN INDICATION
     Dates: start: 20111101, end: 20111209
  4. VALSARTAN [Concomitant]
     Dates: start: 20111209
  5. CYCLOPHOSPHAMIDE [Suspect]
     Indication: BREAST CANCER
     Dosage: TOTAL DOSE: 1070 MG
     Route: 042
  6. AMLODIPINE [Concomitant]
     Dates: start: 20101008, end: 20111101
  7. TAMOXIFEN CITRATE [Concomitant]
     Dates: start: 20110113
  8. DOCETAXEL [Suspect]
     Indication: BREAST CANCER
     Dosage: TOTAL DOSE: 170 MG
     Route: 042
  9. RAMIPRIL [Concomitant]
     Dates: start: 20101015, end: 20110623
  10. TORSEMIDE [Concomitant]
     Dates: start: 20111209
  11. HERCEPTIN [Suspect]
     Dosage: MAINTAINCE DOSE.TOATL DOSE: 440 MG
     Route: 042
  12. FLUOROURACIL [Suspect]
     Indication: BREAST CANCER
     Dosage: TOTAL DOSE: 1030 MG
     Route: 042
  13. AVASTIN [Suspect]
     Indication: BREAST CANCER
     Dosage: TOTAL DOSE: 1110 MG
     Route: 042
  14. EPIRUBICIN HYDROCHLORIDE [Suspect]
     Indication: BREAST CANCER
     Dosage: TOATL DOSE: 161 MG, DATE OF LAST DOSE PRIOR TO SAE 26 NOV 2011
     Route: 042

REACTIONS (2)
  - ABDOMINAL PAIN UPPER [None]
  - PANCREATITIS [None]
